FAERS Safety Report 8487183-1 (Version None)
Quarter: 2012Q3

REPORT INFORMATION
  Report Type: 
  Country: None (occurrence: None)
  Receive Date: 20120704
  Receipt Date: 20120621
  Transmission Date: 20120928
  Serious: Yes (Other)
  Sender: FDA-Public Use
  Company Number: JP-ROCHE-1077932

PATIENT
  Sex: Male
  Weight: 13.5 kg

DRUGS (11)
  1. HOKUNALIN [Concomitant]
     Dosage: DOSAGE IS UNCERTAIN.
     Route: 062
     Dates: start: 20120516, end: 20120527
  2. HOKUNALIN [Concomitant]
     Dosage: DOSAGE IS UNCERTAIN.
     Route: 062
     Dates: start: 20120526, end: 20120602
  3. TAMIFLU [Suspect]
     Indication: INFLUENZA
     Dosage: DRY SYRUP
     Route: 048
     Dates: start: 20120528, end: 20120528
  4. ASVERIN [Concomitant]
     Dosage: DOSAGE IS UNCERTAIN.
     Route: 048
     Dates: start: 20120526, end: 20120602
  5. PERIACTIN [Concomitant]
     Route: 048
     Dates: start: 20120526, end: 20120602
  6. LEFTOSE [Concomitant]
     Dosage: DOSAGE IS UNCERTAIN.
     Route: 048
     Dates: start: 20120516, end: 20120527
  7. ASVERIN [Concomitant]
     Dosage: DOSAGE IS UNCERTAIN.
     Route: 048
     Dates: start: 20120516, end: 20120527
  8. MUCODYNE [Concomitant]
     Dosage: DOSAGE IS UNCERTAIN.
     Route: 048
     Dates: start: 20120526, end: 20120602
  9. LEFTOSE [Concomitant]
     Dosage: DOSAGE IS UNCERTAIN.
     Route: 048
     Dates: start: 20120526, end: 20120602
  10. MUCODYNE [Concomitant]
     Dosage: DOSAGE IS UNCERTAIN.
     Route: 048
     Dates: start: 20120516, end: 20120527
  11. PERIACTIN [Concomitant]
     Dosage: DOSAGE IS UNCERTAIN.
     Route: 048
     Dates: start: 20120516, end: 20120527

REACTIONS (1)
  - ABNORMAL BEHAVIOUR [None]
